FAERS Safety Report 9579867 (Version 2)
Quarter: 2013Q4

REPORT INFORMATION
  Report Type: Spontaneous
  Country: US (occurrence: US)
  Receive Date: 20131002
  Receipt Date: 20131113
  Transmission Date: 20140711
  Serious: No
  Sender: FDA-Public Use
  Company Number: US-009507513-1309USA014068

PATIENT
  Age: 18 Year
  Sex: Female
  Weight: 63.95 kg

DRUGS (4)
  1. NEXPLANON [Suspect]
     Indication: CONTRACEPTION
     Dosage: EVERY 3 YEARS 1 ROD
     Route: 059
     Dates: start: 20130308
  2. NEXPLANON [Suspect]
     Indication: MENSTRUAL DISORDER
  3. ZOLOFT [Concomitant]
  4. LEXAPRO [Concomitant]

REACTIONS (7)
  - Haemorrhage [Unknown]
  - Injection site pain [Unknown]
  - Muscle spasms [Unknown]
  - Contusion [Unknown]
  - Implant site rash [Not Recovered/Not Resolved]
  - Hypoaesthesia [Not Recovered/Not Resolved]
  - Implant site bruising [Not Recovered/Not Resolved]
